FAERS Safety Report 15462060 (Version 1)
Quarter: 2018Q4

REPORT INFORMATION
  Report Type: Spontaneous
  Country: ES (occurrence: ES)
  Receive Date: 20181004
  Receipt Date: 20181004
  Transmission Date: 20190204
  Serious: Yes (Other)
  Sender: FDA-Public Use
  Company Number: ES-TEVA-2018-ES-960712

PATIENT
  Age: 45 Year
  Sex: Female

DRUGS (1)
  1. AMOXICILLIN 1,000 MG 20 TABLETS [Suspect]
     Active Substance: AMOXICILLIN
     Indication: COUGH
     Dosage: 1/12H
     Route: 048
     Dates: start: 20180730, end: 20180730

REACTIONS (3)
  - Face oedema [Recovered/Resolved]
  - Rash generalised [Recovered/Resolved]
  - Pruritus [Recovered/Resolved]

NARRATIVE: CASE EVENT DATE: 20180730
